FAERS Safety Report 5169538-6 (Version None)
Quarter: 2006Q4

REPORT INFORMATION
  Report Type: 
  Country: None (occurrence: None)
  Receive Date: 20061204
  Receipt Date: 20061121
  Transmission Date: 20070319
  Serious: Yes (Hospitalization)
  Sender: FDA-Public Use
  Company Number: GXBR2006US02078

PATIENT
  Age: 43 Year
  Sex: Female
  Weight: 90.7 kg

DRUGS (1)
  1. METHYLPREDNISOLONE [Suspect]
     Indication: LABYRINTHITIS
     Dosage: 24MG DAY ONE,DECREASE 4MG QD TOTAL 6 DAYS, ORAL
     Route: 048
     Dates: start: 20061101, end: 20061101

REACTIONS (7)
  - BLOOD PRESSURE DECREASED [None]
  - DEPRESSION [None]
  - HEART RATE DECREASED [None]
  - LOSS OF CONSCIOUSNESS [None]
  - NAUSEA [None]
  - RETCHING [None]
  - VERTIGO [None]
